FAERS Safety Report 24454219 (Version 2)
Quarter: 2024Q4

REPORT INFORMATION
  Report Type: Report from Study
  Country: US (occurrence: US)
  Receive Date: 20241017
  Receipt Date: 20241018
  Transmission Date: 20250115
  Serious: No
  Sender: ROCHE
  Company Number: US-ROCHE-3470491

PATIENT
  Age: 62 Year
  Sex: Female

DRUGS (12)
  1. RITUXAN [Suspect]
     Active Substance: RITUXIMAB
     Indication: Multiple sclerosis
     Dosage: Q 4-6 MONTH
     Route: 041
  2. NUVIGIL [Concomitant]
     Active Substance: ARMODAFINIL
  3. LATANOPROST [Concomitant]
     Active Substance: LATANOPROST
  4. KEPPRA [Concomitant]
     Active Substance: LEVETIRACETAM
  5. PNEUMOVAX 23 [Concomitant]
     Active Substance: PNEUMOCOCCAL VACCINE, POLYVALENT 23
  6. TRAVATAN [Concomitant]
     Active Substance: TRAVOPROST
  7. AMPYRA [Concomitant]
     Active Substance: DALFAMPRIDINE
  8. PREVNAR 13 [Concomitant]
     Active Substance: STREPTOCOCCUS PNEUMONIAE TYPE 1 CAPSULAR POLYSACCHARIDE DIPHTHERIA CRM197 PROTEIN CONJUGATE ANTIGEN\
  9. CLONAZEPAM [Concomitant]
     Active Substance: CLONAZEPAM
  10. AMANTADINE [Concomitant]
     Active Substance: AMANTADINE
  11. COPAXONE [Concomitant]
     Active Substance: GLATIRAMER ACETATE
  12. VITAMIN D3 [Concomitant]
     Active Substance: CHOLECALCIFEROL

REACTIONS (2)
  - Off label use [Unknown]
  - No adverse event [Unknown]
